FAERS Safety Report 7798273-0 (Version None)
Quarter: 2011Q4

REPORT INFORMATION
  Report Type: 
  Country: None (occurrence: None)
  Receive Date: 20111005
  Receipt Date: 20110921
  Transmission Date: 20120403
  Serious: Yes (Hospitalization)
  Sender: FDA-Public Use
  Company Number: GB-ARROW GEN-2011-15296

PATIENT
  Age: 47 Year
  Sex: Male

DRUGS (3)
  1. MIRTAZAPINE [Suspect]
     Indication: DEPRESSION
     Dosage: UNK
     Route: 065
  2. VARENICLINE TARTRATE [Suspect]
     Dosage: UNK
     Route: 065
     Dates: start: 20100501, end: 20100601
  3. VARENICLINE TARTRATE [Suspect]
     Indication: SMOKING CESSATION THERAPY
     Dosage: UNK
     Route: 065
     Dates: start: 20110301, end: 20110501

REACTIONS (3)
  - MOOD SWINGS [None]
  - DEPRESSION [None]
  - SUICIDAL IDEATION [None]
